FAERS Safety Report 6415116-8 (Version None)
Quarter: 2009Q4

REPORT INFORMATION
  Report Type: 
  Country: None (occurrence: None)
  Receive Date: 20091027
  Receipt Date: 20091019
  Transmission Date: 20100525
  Serious: Yes (Hospitalization)
  Sender: FDA-Public Use
  Company Number: US-BIOGENIDEC-2009BI021555

PATIENT
  Age: 37 Year
  Sex: Female

DRUGS (1)
  1. TYSABRI [Suspect]
     Indication: MULTIPLE SCLEROSIS
     Route: 042
     Dates: start: 20080916, end: 20090324

REACTIONS (7)
  - BLADDER OPERATION [None]
  - MALAISE [None]
  - NASOPHARYNGITIS [None]
  - NEPHROLITHIASIS [None]
  - SINUSITIS [None]
  - UTERINE DISORDER [None]
  - WHITE BLOOD CELL COUNT INCREASED [None]
